FAERS Safety Report 6553788-8 (Version None)
Quarter: 2010Q1

REPORT INFORMATION
  Report Type: 
  Country: None (occurrence: None)
  Receive Date: 20100125
  Receipt Date: 20100125
  Transmission Date: 20100710
  Serious: Yes (Hospitalization, Other)
  Sender: FDA-Public Use
  Company Number: None

PATIENT
  Age: 59 Year
  Sex: Female
  Weight: 56.6996 kg

DRUGS (6)
  1. SEROQUEL [Suspect]
     Indication: BIPOLAR DISORDER
     Dosage: 350 MG BED TIME
     Dates: start: 20080101, end: 20091031
  2. LITHIUM [Suspect]
     Indication: ANXIETY
     Dates: start: 20080101, end: 20091031
  3. LITHIUM [Suspect]
     Indication: BIPOLAR DISORDER
     Dates: start: 20080101, end: 20091031
  4. LITHIUM [Suspect]
     Indication: NERVE INJURY
     Dates: start: 20080101, end: 20091031
  5. LORAZEPAM [Suspect]
  6. GABAPENTIN [Suspect]

REACTIONS (5)
  - COMA [None]
  - FACIAL BONES FRACTURE [None]
  - FALL [None]
  - MEMORY IMPAIRMENT [None]
  - UPPER LIMB FRACTURE [None]
